FAERS Safety Report 5959888-5 (Version None)
Quarter: 2008Q4

REPORT INFORMATION
  Report Type: 
  Country: None (occurrence: None)
  Receive Date: 20081119
  Receipt Date: 20081119
  Transmission Date: 20090506
  Serious: No
  Sender: FDA-Public Use
  Company Number: None

PATIENT
  Age: 52 Year
  Sex: Male
  Weight: 79 kg

DRUGS (11)
  1. INSULIN, REGULAR [Suspect]
     Indication: DIABETES MELLITUS
     Dosage: 7 UNITS/HR C I
     Dates: start: 20080616, end: 20080617
  2. ACYCLOVIR [Concomitant]
  3. AMPICILLIN [Concomitant]
  4. CEFTRIAXONE [Concomitant]
  5. CLONIDINE [Concomitant]
  6. DOCUSATE [Concomitant]
  7. MYCOPHENOLATE MOFETIL [Concomitant]
  8. PREDNISONE TAB [Concomitant]
  9. RANITIDINE [Concomitant]
  10. TACROLIMUS [Concomitant]
  11. VANCOMYCIN [Concomitant]

REACTIONS (4)
  - BLOOD GLUCOSE DECREASED [None]
  - DYSARTHRIA [None]
  - HYPERHIDROSIS [None]
  - TONGUE PARALYSIS [None]
